FAERS Safety Report 4752158-2 (Version None)
Quarter: 2005Q3

REPORT INFORMATION
  Report Type: 
  Country: None (occurrence: None)
  Receive Date: 20050824
  Receipt Date: 20050824
  Transmission Date: 20060218
  Serious: Yes (Other)
  Sender: FDA-Public Use
  Company Number: None

PATIENT
  Age: 70 Year
  Sex: Male

DRUGS (4)
  1. THALIDOMIDE [Suspect]
     Indication: ACUTE MYELOID LEUKAEMIA
     Dosage: 200 MG PO QD
     Route: 048
     Dates: start: 20041012
  2. CELEBREX [Suspect]
     Dates: start: 20050819, end: 20050822
  3. ANEGRELIDE [Suspect]
     Indication: MYELOPROLIFERATIVE DISORDER
     Dosage: 1 MG BID
     Dates: start: 20050208
  4. HYDROXYUREA [Suspect]
     Indication: MYELOPROLIFERATIVE DISORDER
     Dosage: 1 GM QD
     Dates: start: 20050818

REACTIONS (6)
  - DRUG HYPERSENSITIVITY [None]
  - HEADACHE [None]
  - OSTEOARTHRITIS [None]
  - RENAL FAILURE [None]
  - THROMBOCYTHAEMIA [None]
  - WHITE BLOOD CELL COUNT INCREASED [None]
